FAERS Safety Report 5083826-3 (Version None)
Quarter: 2006Q3

REPORT INFORMATION
  Report Type: 
  Country: None (occurrence: None)
  Receive Date: 20060818
  Receipt Date: 20060810
  Transmission Date: 20061208
  Serious: Yes (Disabling)
  Sender: FDA-Public Use
  Company Number: JP-BRISTOL-MYERS SQUIBB COMPANY-13472014

PATIENT
  Sex: Female

DRUGS (2)
  1. TAXOL [Suspect]
     Indication: UTERINE CANCER
     Route: 041
  2. PARAPLATIN [Suspect]
     Indication: UTERINE CANCER
     Route: 041

REACTIONS (1)
  - FACIAL PALSY [None]
